FAERS Safety Report 6873654-8 (Version None)
Quarter: 2010Q3

REPORT INFORMATION
  Report Type: 
  Country: None (occurrence: None)
  Receive Date: 20100723
  Receipt Date: 20090402
  Transmission Date: 20110219
  Serious: No
  Sender: FDA-Public Use
  Company Number: US-PFIZER INC-2009158784

PATIENT
  Sex: Female
  Weight: 43.544 kg

DRUGS (2)
  1. CHANTIX [Suspect]
     Indication: SMOKING CESSATION THERAPY
     Dosage: 1 MG, 2X/DAY
     Dates: start: 20081201, end: 20090101
  2. VITAMIN E [Concomitant]

REACTIONS (3)
  - AGITATION [None]
  - ANGER [None]
  - FEELING ABNORMAL [None]
